FAERS Safety Report 24055979 (Version 4)
Quarter: 2024Q4

REPORT INFORMATION
  Report Type: Report from Study
  Country: CA (occurrence: CA)
  Receive Date: 20240705
  Receipt Date: 20241122
  Transmission Date: 20250115
  Serious: Yes (Hospitalization, Other)
  Sender: OTSUKA
  Company Number: CA-OTSUKA-2023_002454

PATIENT
  Age: 58 Year
  Sex: Female

DRUGS (2)
  1. ARIPIPRAZOLE [Suspect]
     Active Substance: ARIPIPRAZOLE
     Indication: Product used for unknown indication
     Dosage: 400 MG, EVERY 28 DAYS (EVERY 4 WEEKS)
     Route: 030
  2. ARIPIPRAZOLE [Suspect]
     Active Substance: ARIPIPRAZOLE
     Dosage: 300 MG (EVERY 4 WEEKS)/EVERY 28 DAYS
     Route: 030
     Dates: start: 20240423

REACTIONS (21)
  - Coma [Recovering/Resolving]
  - Aphasia [Recovering/Resolving]
  - Feeding disorder [Recovering/Resolving]
  - Tearfulness [Recovering/Resolving]
  - Pneumonia [Recovering/Resolving]
  - Gait inability [Recovering/Resolving]
  - Disorientation [Recovering/Resolving]
  - Paranoia [Recovering/Resolving]
  - Loss of consciousness [Recovering/Resolving]
  - Anxiety [Recovering/Resolving]
  - Crying [Recovering/Resolving]
  - Limb discomfort [Not Recovered/Not Resolved]
  - Discomfort [Not Recovered/Not Resolved]
  - Malaise [Recovered/Resolved]
  - Malaise [Recovering/Resolving]
  - Nasopharyngitis [Recovered/Resolved]
  - Fatigue [Not Recovered/Not Resolved]
  - Product dose omission issue [Recovered/Resolved]
  - Inappropriate schedule of product administration [Unknown]
  - Product availability issue [Recovered/Resolved]
  - Off label use [Unknown]

NARRATIVE: CASE EVENT DATE: 20240423
